FAERS Safety Report 4761496-9 (Version None)
Quarter: 2005Q3

REPORT INFORMATION
  Report Type: 
  Country: None (occurrence: None)
  Receive Date: 20050906
  Receipt Date: 20050801
  Transmission Date: 20060218
  Serious: Yes (Hospitalization)
  Sender: FDA-Public Use
  Company Number: JP-GLAXOSMITHKLINE-B0389592A

PATIENT
  Age: 66 Year
  Sex: Male

DRUGS (4)
  1. ZANTAC [Suspect]
     Indication: GASTRIC ULCER
     Dosage: 150MG PER DAY
     Route: 048
     Dates: start: 20050616, end: 20050722
  2. OLMETEC [Suspect]
     Indication: HYPERTENSION
     Dosage: 20MG PER DAY
     Route: 048
     Dates: start: 20050616, end: 20050722
  3. PLETAL [Concomitant]
     Indication: CEREBRAL INFARCTION
     Dosage: 200MG TWICE PER DAY
     Route: 048
     Dates: start: 19981019
  4. CALBLOCK [Concomitant]
     Indication: HYPERTENSION
     Dosage: 16MG PER DAY
     Route: 048
     Dates: start: 20040903

REACTIONS (5)
  - HENOCH-SCHONLEIN PURPURA [None]
  - MUCOSAL EROSION [None]
  - PURPURA [None]
  - PYREXIA [None]
  - RASH [None]
